FAERS Safety Report 5401447-7 (Version None)
Quarter: 2007Q3

REPORT INFORMATION
  Report Type: 
  Country: None (occurrence: None)
  Receive Date: 20070726
  Receipt Date: 20070709
  Transmission Date: 20080115
  Serious: Yes (Other)
  Sender: FDA-Public Use
  Company Number: 2007JP003304

PATIENT
  Age: 19 Year
  Sex: Female

DRUGS (8)
  1. PROGRAF [Suspect]
     Indication: LUNG TRANSPLANT
     Dosage: 2. 5 MG, BID, 0,5 MG, BID
  2. PREDNISOLONE [Suspect]
     Indication: LUNG TRANSPLANT
  3. AZATHIOPRINE [Suspect]
     Indication: LUNG TRANSPLANT
  4. GANCICLOVIR (GANCICLOVIR) INJECTION [Concomitant]
  5. VALGANCICLOVIR HCL [Concomitant]
  6. VALACYCLOVIR [Concomitant]
  7. DEXAMETHASONE TAB [Concomitant]
  8. SIROLIMUS (SIROLIMUS) [Concomitant]

REACTIONS (9)
  - BRAIN OEDEMA [None]
  - CEREBROVASCULAR DISORDER [None]
  - EPSTEIN-BARR VIRUS INFECTION [None]
  - GENERAL PHYSICAL HEALTH DETERIORATION [None]
  - LEIOMYOSARCOMA [None]
  - NEOPLASM RECURRENCE [None]
  - RESPIRATORY DISTRESS [None]
  - SMOOTH MUSCLE ANTIBODY POSITIVE [None]
  - VIRAEMIA [None]
